FAERS Safety Report 24987271 (Version 2)
Quarter: 2025Q1

REPORT INFORMATION
  Report Type: Spontaneous
  Country: DE (occurrence: DE)
  Receive Date: 20250219
  Receipt Date: 20250310
  Transmission Date: 20250409
  Serious: Yes (Life-Threatening, Hospitalization, Other)
  Sender: BOEHRINGER INGELHEIM
  Company Number: DE-BoehringerIngelheim-2025-BI-009639

PATIENT
  Age: 57 Year
  Sex: Male
  Weight: 109 kg

DRUGS (5)
  1. JARDIANCE [Suspect]
     Active Substance: EMPAGLIFLOZIN
     Indication: Type 2 diabetes mellitus
     Dates: start: 2022, end: 202501
  2. CANDESARTAN [Concomitant]
     Active Substance: CANDESARTAN
     Indication: Hypertension
  3. METFORMIN [Concomitant]
     Active Substance: METFORMIN HYDROCHLORIDE
     Indication: Type 2 diabetes mellitus
  4. TORSEMIDE [Concomitant]
     Active Substance: TORSEMIDE
     Indication: Hypertension
  5. TORSEMIDE [Concomitant]
     Active Substance: TORSEMIDE
     Indication: Polyuria

REACTIONS (9)
  - Fournier^s gangrene [Unknown]
  - Septic shock [Unknown]
  - Coma [Recovered/Resolved]
  - Ketoacidosis [Unknown]
  - Acute kidney injury [Unknown]
  - Atrial flutter [Unknown]
  - Hypocalcaemia [Unknown]
  - C-reactive protein increased [Unknown]
  - Anaemia [Unknown]

NARRATIVE: CASE EVENT DATE: 20250101
